FAERS Safety Report 13264177 (Version 1)
Quarter: 2017Q1

REPORT INFORMATION
  Report Type: Spontaneous
  Country: US (occurrence: US)
  Receive Date: 20170222
  Receipt Date: 20170222
  Transmission Date: 20170428
  Serious: Yes (Hospitalization)
  Sender: FDA-Public Use
  Company Number: None

PATIENT
  Sex: Female

DRUGS (4)
  1. LIDOCAINE. [Concomitant]
     Active Substance: LIDOCAINE
  2. GABAPENTIN. [Concomitant]
     Active Substance: GABAPENTIN
  3. IBRANCE [Suspect]
     Active Substance: PALBOCICLIB
     Indication: BONE CANCER
     Route: 048
     Dates: start: 20161112
  4. DEXAMETHASONE. [Concomitant]
     Active Substance: DEXAMETHASONE

REACTIONS (2)
  - Fall [None]
  - Seizure [None]

NARRATIVE: CASE EVENT DATE: 2017
